FAERS Safety Report 22032824 (Version 2)
Quarter: 2023Q1

REPORT INFORMATION
  Report Type: Spontaneous
  Country: JP (occurrence: None)
  Receive Date: 20230224
  Receipt Date: 20230303
  Transmission Date: 20230418
  Serious: Yes (Life-Threatening, Hospitalization, Other)
  Sender: FDA-Public Use
  Company Number: JP-Merck Healthcare KGaA-9380219

PATIENT
  Age: 58 Year
  Sex: Male
  Weight: 67 kg

DRUGS (14)
  1. METGLUCO [Suspect]
     Active Substance: METFORMIN HYDROCHLORIDE
     Indication: Type 2 diabetes mellitus
     Route: 048
     Dates: start: 202105, end: 202109
  2. METGLUCO [Suspect]
     Active Substance: METFORMIN HYDROCHLORIDE
     Route: 048
     Dates: start: 202109, end: 202201
  3. METGLUCO [Suspect]
     Active Substance: METFORMIN HYDROCHLORIDE
     Route: 048
     Dates: start: 202301
  4. BISOPROLOL FUMARATE [Suspect]
     Active Substance: BISOPROLOL FUMARATE
     Indication: Hypertension
  5. AMLODIPINE BESYLATE\VALSARTAN [Suspect]
     Active Substance: AMLODIPINE BESYLATE\VALSARTAN
     Indication: Hypertension
     Dates: end: 20230116
  6. DICLOFENAC SODIUM [Suspect]
     Active Substance: DICLOFENAC SODIUM
     Indication: Product used for unknown indication
  7. DIAMOX SEQUELS [Suspect]
     Active Substance: ACETAZOLAMIDE
     Indication: Glaucoma
  8. MANNITOL [Suspect]
     Active Substance: MANNITOL
     Indication: Glaucoma
  9. TRULICITY [Suspect]
     Active Substance: DULAGLUTIDE
     Indication: Product used for unknown indication
     Dates: start: 202106, end: 20221226
  10. POTASSIUM ASPARTATE [Suspect]
     Active Substance: POTASSIUM ASPARTATE
     Indication: Product used for unknown indication
  11. OZEMPIC [Suspect]
     Active Substance: SEMAGLUTIDE
     Indication: Product used for unknown indication
  12. ROSUVASTATIN CALCIUM [Concomitant]
     Active Substance: ROSUVASTATIN CALCIUM
     Indication: Hyperlipidaemia
     Dates: start: 202204
  13. PREGABALIN [Concomitant]
     Active Substance: PREGABALIN
     Indication: Product used for unknown indication
  14. REBAMIPIDE [Concomitant]
     Active Substance: REBAMIPIDE
     Indication: Product used for unknown indication

REACTIONS (11)
  - Lactic acidosis [Unknown]
  - Toxicity to various agents [Unknown]
  - Dehydration [Unknown]
  - Renal disorder [Unknown]
  - Blood pressure decreased [Unknown]
  - Glaucoma [Recovering/Resolving]
  - Blood ketone body increased [Unknown]
  - Poor peripheral circulation [Unknown]
  - Increased appetite [Unknown]
  - Malaise [Unknown]
  - Decreased appetite [Not Recovered/Not Resolved]

NARRATIVE: CASE EVENT DATE: 20221226
